FAERS Safety Report 5564658-6 (Version None)
Quarter: 2007Q4

REPORT INFORMATION
  Report Type: 
  Country: None (occurrence: None)
  Receive Date: 20071218
  Receipt Date: 20070510
  Transmission Date: 20080405
  Serious: Yes (Other)
  Sender: FDA-Public Use
  Company Number: US-ASTRAZENECA-2006UW10924

PATIENT
  Sex: Male

DRUGS (6)
  1. SEROQUEL [Suspect]
     Route: 048
     Dates: start: 20011101, end: 20051201
  2. ZYPREXA [Concomitant]
     Route: 048
     Dates: start: 20010101, end: 20020101
  3. PAXIL [Concomitant]
     Route: 048
     Dates: start: 20010101, end: 20060101
  4. EFFEXOR [Concomitant]
     Route: 048
     Dates: start: 20030101, end: 20050101
  5. DEPAKOTE [Concomitant]
     Route: 048
     Dates: start: 20010101, end: 20030101
  6. LITHIUM CARBONATE [Concomitant]
     Route: 048
     Dates: start: 20010101, end: 20030101

REACTIONS (4)
  - BLOOD CHOLESTEROL INCREASED [None]
  - BLOOD TRIGLYCERIDES INCREASED [None]
  - DIABETES MELLITUS [None]
  - DIABETIC KETOACIDOSIS [None]
